FAERS Safety Report 17798843 (Version 2)
Quarter: 2020Q2

REPORT INFORMATION
  Report Type: Spontaneous
  Country: IT (occurrence: IT)
  Receive Date: 20200518
  Receipt Date: 20200605
  Transmission Date: 20200714
  Serious: Yes (Hospitalization)
  Sender: FDA-Public Use
  Company Number: IT-CELGENEUS-ITA-20200503996

PATIENT
  Age: 64 Year
  Sex: Male
  Weight: 80 kg

DRUGS (21)
  1. BORTEZOMIB. [Concomitant]
     Active Substance: BORTEZOMIB
     Route: 058
     Dates: start: 2019, end: 20191024
  2. TRAZODONE [Concomitant]
     Active Substance: TRAZODONE HYDROCHLORIDE
     Indication: HYPERTENSION
     Route: 048
     Dates: start: 20190808
  3. ACYCLOVIR. [Concomitant]
     Active Substance: ACYCLOVIR
     Indication: ANTIVIRAL PROPHYLAXIS
     Dosage: 400 MILLIGRAM
     Route: 048
     Dates: start: 20190809
  4. NEO LOTAN [Concomitant]
     Indication: HYPERTENSION
     Dosage: 1 CAPUSLE
     Route: 048
  5. DEXAMETHASONE. [Suspect]
     Active Substance: DEXAMETHASONE
     Indication: PLASMA CELL MYELOMA
     Route: 048
     Dates: start: 20190809, end: 20190917
  6. LANSOPRAZOLO [Concomitant]
     Active Substance: LANSOPRAZOLE
     Indication: PROPHYLAXIS
     Dosage: 15 MILLIGRAM
     Route: 048
     Dates: start: 20190808
  7. CARDIOASPIRIN [Concomitant]
     Active Substance: ASPIRIN
     Indication: THROMBOSIS PROPHYLAXIS
     Dosage: 100 MILLIGRAM
     Route: 048
     Dates: start: 20190810
  8. DUROGESIC [Concomitant]
     Active Substance: FENTANYL
     Indication: BONE PAIN
     Route: 062
     Dates: start: 20190808
  9. ANTARA [Concomitant]
     Active Substance: FENOFIBRATE
     Indication: PROPHYLAXIS
     Route: 041
     Dates: start: 20190929, end: 20191004
  10. DEXAMETHASONE. [Suspect]
     Active Substance: DEXAMETHASONE
     Route: 048
     Dates: start: 2019, end: 20191025
  11. ZOMETA [Concomitant]
     Active Substance: ZOLEDRONIC ACID
     Indication: ANAEMIA
     Dosage: 4 MILLIGRAM
     Route: 041
     Dates: start: 20190809
  12. BORTEZOMIB. [Concomitant]
     Active Substance: BORTEZOMIB
     Indication: PLASMA CELL MYELOMA
     Route: 058
     Dates: start: 20190809, end: 20190916
  13. ZYLORIC [Concomitant]
     Active Substance: ALLOPURINOL
     Indication: PROPHYLAXIS
     Dosage: 300 MILLIGRAM
     Route: 048
     Dates: start: 20190808
  14. LENALIDOMIDE [Suspect]
     Active Substance: LENALIDOMIDE
     Indication: PLASMA CELL MYELOMA
     Route: 048
     Dates: start: 20190809, end: 20190926
  15. LAMIVUDINA [Concomitant]
     Active Substance: LAMIVUDINE
     Indication: PROPHYLAXIS
     Route: 048
     Dates: start: 20190815
  16. ANTRA [Concomitant]
     Active Substance: OMEPRAZOLE
     Indication: PROPHYLAXIS
     Dosage: 1 VIAL
     Route: 041
     Dates: start: 20190810
  17. GLAZIDIM [Concomitant]
     Active Substance: CEFTAZIDIME
     Indication: COUGH
     Dosage: 2 GRAM
     Route: 041
     Dates: start: 20191009, end: 20191014
  18. BORTEZOMIB. [Concomitant]
     Active Substance: BORTEZOMIB
     Route: 058
     Dates: start: 201910, end: 20191025
  19. ANTRA [Concomitant]
     Active Substance: OMEPRAZOLE
     Indication: PROPHYLAXIS
     Dosage: 40 MILLIGRAM
     Route: 041
     Dates: start: 20190929, end: 20191004
  20. ANTRA [Concomitant]
     Active Substance: OMEPRAZOLE
     Dosage: 40 MILLIGRAM
     Route: 041
     Dates: start: 20191010, end: 20191014
  21. LASIX [Concomitant]
     Active Substance: FUROSEMIDE
     Indication: PROPHYLAXIS
     Dosage: 10 MILLIGRAM
     Route: 041
     Dates: start: 20190929, end: 20190930

REACTIONS (4)
  - Bone pain [Recovered/Resolved with Sequelae]
  - Deep vein thrombosis [Recovered/Resolved with Sequelae]
  - Erysipelas [Recovered/Resolved with Sequelae]
  - Pyrexia [Recovered/Resolved]

NARRATIVE: CASE EVENT DATE: 20190928
